FAERS Safety Report 9857019 (Version 5)
Quarter: 2014Q2

REPORT INFORMATION
  Report Type: Spontaneous
  Country: DK (occurrence: None)
  Receive Date: 20140128
  Receipt Date: 20140618
  Transmission Date: 20141212
  Serious: Yes (Hospitalization, Other)
  Sender: FDA-Public Use
  Company Number: 2014MPI00032

PATIENT
  Age: 20 Year
  Sex: Male
  Weight: 84.1 kg

DRUGS (11)
  1. BRENTUXIMAB VEDOTIN [Suspect]
     Indication: HODGKIN^S DISEASE
     Route: 042
     Dates: start: 20130923, end: 20131230
  2. DOXORUBICIN [Suspect]
     Indication: HODGKIN^S DISEASE
     Route: 042
     Dates: start: 20130923, end: 20131230
  3. DACARBAZINE [Suspect]
     Indication: HODGKIN^S DISEASE
     Route: 042
     Dates: start: 20130923, end: 20131230
  4. VINBLASTIN [Suspect]
     Indication: HODGKIN^S DISEASE
     Route: 042
     Dates: start: 20130923, end: 20131230
  5. FEXOFENADINE (FEXOFENADINE) (FEXOFENADINE) [Concomitant]
  6. APREPITANT (APREPITANT) [Concomitant]
  7. ONDANSETRON (ONDANSETRON) [Concomitant]
  8. PREDNISOLON (PREDNISOLONE) [Concomitant]
  9. PARACETAMOL A [Concomitant]
  10. CLEMASTINE [Concomitant]
  11. ALLOPURINOL [Concomitant]

REACTIONS (2)
  - Deep vein thrombosis [None]
  - Pulmonary embolism [None]
